FAERS Safety Report 9032668 (Version 5)
Quarter: 2013Q4

REPORT INFORMATION
  Report Type: Spontaneous
  Country: US (occurrence: None)
  Receive Date: 20130110
  Receipt Date: 20131025
  Transmission Date: 20140711
  Serious: Yes (Hospitalization, Disabling, Other)
  Sender: FDA-Public Use
  Company Number: ACO_33605_2012

PATIENT
  Age: 62 Year
  Sex: Female
  Weight: 58 kg

DRUGS (1)
  1. AMPYRA [Suspect]
     Indication: PRODUCT USED FOR UNKNOWN INDICATION
     Dates: start: 2010, end: 20130101

REACTIONS (24)
  - Breast cancer female [None]
  - Appendicitis perforated [None]
  - Hip fracture [None]
  - Fall [None]
  - Procedural complication [None]
  - Abasia [None]
  - Surgical failure [None]
  - Post procedural complication [None]
  - Device dislocation [None]
  - Gait disturbance [None]
  - Pain [None]
  - Back disorder [None]
  - Balance disorder [None]
  - Adverse drug reaction [None]
  - Treatment noncompliance [None]
  - Gait disturbance [None]
  - Ileus [None]
  - Pyrexia [None]
  - Medical device pain [None]
  - Multiple sclerosis relapse [None]
  - Diarrhoea [None]
  - Therapeutic response unexpected [None]
  - Dizziness [None]
  - Abasia [None]
